FAERS Safety Report 19788217 (Version 1)
Quarter: 2021Q3

REPORT INFORMATION
  Report Type: Spontaneous
  Country: US (occurrence: US)
  Receive Date: 20210903
  Receipt Date: 20210903
  Transmission Date: 20211014
  Serious: No
  Sender: FDA-Public Use
  Company Number: US-US-PROVELL PHARMACEUTICALS LLC-9261889

PATIENT
  Age: 61 Year
  Sex: Male
  Weight: 95 kg

DRUGS (3)
  1. EUTHYROX [Suspect]
     Active Substance: LEVOTHYROXINE SODIUM
     Indication: THYROID DISORDER
  2. EUTHYROX [Suspect]
     Active Substance: LEVOTHYROXINE SODIUM
     Indication: HYPOTHYROIDISM
  3. EUTHYROX [Suspect]
     Active Substance: LEVOTHYROXINE SODIUM
     Indication: HYPOTHYROIDISM
     Dosage: 2 TABLETS (250 MCG) 5 DAYS A WEEK AND 1.5 TABLETS (187MCG) TABLETS TWO DAYS A WEEK.
     Route: 048
     Dates: start: 20210823

REACTIONS (5)
  - Pollakiuria [Unknown]
  - Headache [Not Recovered/Not Resolved]
  - Heart rate increased [Unknown]
  - Feeling abnormal [Unknown]
  - Middle insomnia [Unknown]

NARRATIVE: CASE EVENT DATE: 202108
